FAERS Safety Report 8292650-X (Version None)
Quarter: 2012Q2

REPORT INFORMATION
  Report Type: 
  Country: None (occurrence: None)
  Receive Date: 20120417
  Receipt Date: 20110913
  Transmission Date: 20120825
  Serious: No
  Sender: FDA-Public Use
  Company Number: US-ASTRAZENECA-2010SE38171

PATIENT
  Sex: Female

DRUGS (18)
  1. TRAZODONE HCL [Concomitant]
  2. SIMVASTATIN [Concomitant]
  3. NEXIUM [Suspect]
     Indication: GASTROOESOPHAGEAL REFLUX DISEASE
     Route: 048
  4. AZATHIOPRINE [Concomitant]
  5. ALPRAZOLAM [Concomitant]
  6. LASIX [Concomitant]
  7. VITAMIN D [Concomitant]
  8. ADVAIR DISKUS 100/50 [Concomitant]
  9. ROPINIROLE [Concomitant]
  10. NEXIUM [Suspect]
     Indication: BARRETT'S OESOPHAGUS
     Route: 048
  11. QUALAQUIN [Concomitant]
  12. FUROSEMIDE [Concomitant]
  13. N ACETYL CYSTINE [Concomitant]
  14. LEVOTHYROXINE SODIUM [Concomitant]
  15. NEXIUM [Suspect]
     Indication: GASTROINTESTINAL DISORDER
     Route: 048
  16. CALCIUM CARBONATE [Concomitant]
  17. CLONAZEPAM [Concomitant]
  18. MECLIZINE [Concomitant]

REACTIONS (7)
  - LUNG DISORDER [None]
  - DRUG DOSE OMISSION [None]
  - GASTRIC ULCER [None]
  - BARRETT'S OESOPHAGUS [None]
  - CHEST PAIN [None]
  - DYSPEPSIA [None]
  - CHEST DISCOMFORT [None]
